FAERS Safety Report 8191790-3 (Version None)
Quarter: 2012Q1

REPORT INFORMATION
  Report Type: 
  Country: None (occurrence: None)
  Receive Date: 20120307
  Receipt Date: 20120224
  Transmission Date: 20120608
  Serious: Yes (Other)
  Sender: FDA-Public Use
  Company Number: CHPA2012US002114

PATIENT
  Age: 53 Year
  Sex: Female
  Weight: 65.306 kg

DRUGS (9)
  1. XANAX [Concomitant]
     Indication: ANXIETY
     Dosage: 1 MG, BID
     Route: 048
  2. LASIX [Concomitant]
     Indication: FLUID RETENTION
     Dosage: UNK, UNK
     Route: 048
  3. PLAQUENIL [Concomitant]
     Indication: RHEUMATOID ARTHRITIS
     Dosage: UNK, UNK
     Route: 048
  4. MORPHINE [Concomitant]
     Indication: BACK PAIN
     Dosage: 15 MG, Q6-8H PRN
     Route: 048
  5. NICOTINE [Suspect]
     Dosage: 1 PATCH, DAILY DURING DAYTIME
     Route: 062
  6. REQUIP [Concomitant]
     Indication: RESTLESS LEGS SYNDROME
     Dosage: 1 DF, QPM
     Route: 048
  7. NICOTINE [Suspect]
     Indication: SMOKING CESSATION THERAPY
     Dosage: 21 MG, QD
     Route: 062
     Dates: start: 20120101
  8. ZANAFLEX [Concomitant]
     Indication: MUSCLE SPASMS
     Dosage: 4 MG, Q8H
     Route: 048
  9. OXYCODONE HCL [Concomitant]
     Indication: BACK PAIN
     Dosage: UNK, UNK
     Route: 048
     Dates: end: 20120301

REACTIONS (21)
  - SMEAR CERVIX ABNORMAL [None]
  - DISTURBANCE IN ATTENTION [None]
  - OVERDOSE [None]
  - DYSGEUSIA [None]
  - INCORRECT DRUG ADMINISTRATION DURATION [None]
  - FEELING ABNORMAL [None]
  - ANXIETY [None]
  - ASTHENIA [None]
  - TREATMENT NONCOMPLIANCE [None]
  - VAGINAL DYSPLASIA [None]
  - FEELING COLD [None]
  - HUNGER [None]
  - INSOMNIA [None]
  - PAPILLOMA VIRAL INFECTION [None]
  - WEIGHT DECREASED [None]
  - HYPERHIDROSIS [None]
  - FATIGUE [None]
  - VAGINAL LESION [None]
  - HOT FLUSH [None]
  - ABNORMAL DREAMS [None]
  - IRRITABILITY [None]
